FAERS Safety Report 4413181-0 (Version None)
Quarter: 2004Q3

REPORT INFORMATION
  Report Type: 
  Country: None (occurrence: None)
  Receive Date: 20040802
  Receipt Date: 20040721
  Transmission Date: 20050211
  Serious: Yes (Other)
  Sender: FDA-Public Use
  Company Number: GB-GLAXOSMITHKLINE-B0340103A

PATIENT
  Age: 76 Year
  Sex: Female
  Weight: 73.5 kg

DRUGS (8)
  1. ACYCLOVIR [Suspect]
     Indication: HERPES ZOSTER
     Dosage: 800MG PER DAY
     Route: 048
     Dates: start: 20040712, end: 20040714
  2. PROCHLORPERAZINE MALEATE [Concomitant]
     Route: 065
     Dates: start: 20040713
  3. CO-CODAMOL [Concomitant]
     Dosage: 1U UNKNOWN
     Route: 065
     Dates: start: 20040712
  4. TEGRETOL [Concomitant]
     Route: 065
     Dates: start: 20040712
  5. ADCAL D3 [Concomitant]
     Route: 065
     Dates: start: 20040521
  6. CLOPIDOGREL [Concomitant]
     Dosage: 75MG PER DAY
     Route: 065
     Dates: start: 20040521
  7. CELECOXIB [Concomitant]
     Route: 065
     Dates: start: 20040429
  8. RANITIDINE [Concomitant]
     Route: 065

REACTIONS (3)
  - ASTHENIA [None]
  - DYSARTHRIA [None]
  - VOMITING [None]
